FAERS Safety Report 6449666-5 (Version None)
Quarter: 2009Q4

REPORT INFORMATION
  Report Type: 
  Country: None (occurrence: None)
  Receive Date: 20091120
  Receipt Date: 20091117
  Transmission Date: 20100525
  Serious: Yes (Death, Other)
  Sender: FDA-Public Use
  Company Number: PHHY2009JP45952

PATIENT
  Sex: Female
  Weight: 0.292 kg

DRUGS (7)
  1. DIOVAN [Suspect]
     Indication: HYPERTENSION
     Dosage: MATERNAL DOSE 80 MG, QD
     Route: 064
     Dates: end: 20090903
  2. ADALAT CC [Concomitant]
     Indication: HYPERTENSION
     Dosage: MATERNAL 40 MG
     Route: 064
     Dates: end: 20090903
  3. CARDENALIN [Concomitant]
     Indication: HYPERTENSION
     Dosage: MATERNAL DOSE 2 MG
     Route: 064
     Dates: end: 20090903
  4. ACTOS [Concomitant]
     Indication: DIABETES MELLITUS
     Dosage: MATERNAL DOSE 15 MG
     Route: 064
     Dates: end: 20090903
  5. MELBIN [Concomitant]
     Indication: DIABETES MELLITUS
     Dosage: MATERNAL DOSE 500 MG
     Route: 064
     Dates: end: 20090903
  6. MIGLITOL [Concomitant]
     Indication: DIABETES MELLITUS
     Dosage: MATERNAL DOSE 150 MG
     Route: 064
     Dates: start: 20090122, end: 20090903
  7. AMARYL [Concomitant]
     Indication: DIABETES MELLITUS
     Dosage: MATERNAL DOSE 1 MG
     Route: 064
     Dates: end: 20090903

REACTIONS (3)
  - DRUG EXPOSURE DURING PREGNANCY [None]
  - GENERALISED OEDEMA [None]
  - UMBILICAL CORD AROUND NECK [None]
